FAERS Safety Report 9927770 (Version 3)
Quarter: 2016Q2

REPORT INFORMATION
  Report Type: Report from Study
  Country: US (occurrence: US)
  Receive Date: 20140227
  Receipt Date: 20160426
  Transmission Date: 20160815
  Serious: Yes (Hospitalization, Other)
  Sender: FDA-Public Use
  Company Number: US-ROCHE-1338575

PATIENT
  Age: 77 Year
  Sex: Male

DRUGS (29)
  1. LUCENTIS [Suspect]
     Active Substance: RANIBIZUMAB
     Indication: DIABETIC RETINOPATHY
     Dosage: OD
     Route: 050
     Dates: start: 20090306
  2. MACUGEN [Concomitant]
     Active Substance: PEGAPTANIB SODIUM
     Route: 050
     Dates: start: 20120417
  3. LABETALOL [Concomitant]
     Active Substance: LABETALOL\LABETALOL HYDROCHLORIDE
     Route: 065
  4. LUCENTIS [Suspect]
     Active Substance: RANIBIZUMAB
     Dosage: PRN
     Route: 050
     Dates: start: 20120202, end: 20120202
  5. LIPITOR [Concomitant]
     Active Substance: ATORVASTATIN CALCIUM
     Indication: HYPERLIPIDAEMIA
     Route: 048
  6. ASPIRIN. [Concomitant]
     Active Substance: ASPIRIN
     Route: 065
  7. SIMVASTIN [Concomitant]
     Active Substance: SIMVASTATIN
     Route: 065
  8. COLACE [Concomitant]
     Active Substance: DOCUSATE SODIUM
     Route: 065
  9. WELLBUTRIN [Concomitant]
     Active Substance: BUPROPION HYDROCHLORIDE
     Route: 065
  10. BETADINE [Concomitant]
     Active Substance: POVIDONE-IODINE
     Route: 065
  11. ZYMAR [Concomitant]
     Active Substance: GATIFLOXACIN
     Dosage: QID OD
     Route: 065
  12. RENVELA [Concomitant]
     Active Substance: SEVELAMER CARBONATE
     Route: 065
  13. LEVEMIR [Concomitant]
     Active Substance: INSULIN DETEMIR
     Route: 065
  14. PANTOPRAZOLE [Concomitant]
     Active Substance: PANTOPRAZOLE SODIUM
     Route: 065
  15. AGGRENOX [Concomitant]
     Active Substance: ASPIRIN\DIPYRIDAMOLE
     Dosage: 25-200 MG
     Route: 065
  16. AVASTIN [Suspect]
     Active Substance: BEVACIZUMAB
     Indication: PRODUCT USED FOR UNKNOWN INDICATION
     Route: 065
  17. PRILOSEC [Concomitant]
     Active Substance: OMEPRAZOLE MAGNESIUM
     Route: 065
  18. HYDRALAZINE [Concomitant]
     Active Substance: HYDRALAZINE HYDROCHLORIDE
     Route: 065
  19. NEO-SYNEPHRINE (PHENYLEPHRINE) [Concomitant]
     Route: 065
  20. BROMFENAC [Concomitant]
     Active Substance: BROMFENAC SODIUM
     Route: 047
  21. TRANDATE [Concomitant]
     Active Substance: LABETALOL HYDROCHLORIDE
     Route: 065
  22. LIDOCAINE. [Concomitant]
     Active Substance: LIDOCAINE
     Route: 057
  23. GENTAMYCIN SULFATE [Concomitant]
     Active Substance: GENTAMICIN SULFATE
     Dosage: QID OD
     Route: 047
  24. NEPHROCAPS [Concomitant]
     Active Substance: ASCORBIC ACID\BIOTIN\CYANOCOBALAMIN\FOLIC ACID\NIACIN\PANTOTHENIC ACID\PYRIDOXINE\RIBOFLAVIN\THIAMINE
  25. LUCENTIS [Suspect]
     Active Substance: RANIBIZUMAB
     Indication: DIABETIC RETINAL OEDEMA
     Dosage: PRN
     Route: 050
     Dates: start: 20120306, end: 20120306
  26. HUMALOG [Concomitant]
     Active Substance: INSULIN LISPRO
     Dosage: 15 UNITS/ML BEFORE EACH MEAL
     Route: 065
  27. VIGAMOX [Concomitant]
     Active Substance: MOXIFLOXACIN HYDROCHLORIDE
     Dosage: 1 GTT QID OD
     Route: 065
  28. CARBIDOPA/LEVODOPA [Concomitant]
     Active Substance: CARBIDOPA\LEVODOPA
     Dosage: 25-100 MG
     Route: 065
     Dates: end: 20110902
  29. MYDRIACYL [Concomitant]
     Active Substance: TROPICAMIDE
     Route: 065

REACTIONS (18)
  - Cataract [Unknown]
  - Blood glucose increased [Unknown]
  - Retinal degeneration [Unknown]
  - Off label use [Unknown]
  - Retinal oedema [Unknown]
  - Vision blurred [Unknown]
  - Visual acuity reduced [Unknown]
  - Vitreous detachment [Unknown]
  - Macular fibrosis [Unknown]
  - Intraocular lens implant [Unknown]
  - Transient ischaemic attack [Recovering/Resolving]
  - Macular oedema [Unknown]
  - Metamorphopsia [Unknown]
  - Retinal haemorrhage [Unknown]
  - Retinal aneurysm [Unknown]
  - Optic atrophy [Unknown]
  - Cerebrovascular accident [Unknown]
  - Blood glucose fluctuation [Unknown]

NARRATIVE: CASE EVENT DATE: 20110603
